FAERS Safety Report 10508212 (Version 3)
Quarter: 2014Q4

REPORT INFORMATION
  Report Type: Spontaneous
  Country: JP (occurrence: JP)
  Receive Date: 20141009
  Receipt Date: 20141024
  Transmission Date: 20150528
  Serious: Yes (Life-Threatening, Other)
  Sender: FDA-Public Use
  Company Number: JP-TAKEDA-2014TUS009736

PATIENT
  Age: 62 Year
  Sex: Male
  Weight: 60 kg

DRUGS (5)
  1. KOLANTYL                           /06363201/ [Concomitant]
     Indication: DUODENAL ULCER
     Dosage: 3 G, QD
     Route: 048
     Dates: end: 20141001
  2. ADALAT CC [Concomitant]
     Active Substance: NIFEDIPINE
     Indication: HYPERTENSION
     Dosage: 40 MG, QD
     Route: 048
     Dates: end: 20141001
  3. FLUITRAN [Concomitant]
     Active Substance: TRICHLORMETHIAZIDE
     Indication: HYPERTENSION
     Dosage: 1 MG, QD
     Route: 048
     Dates: end: 20141001
  4. FEBURIC [Suspect]
     Active Substance: FEBUXOSTAT
     Indication: HYPERURICAEMIA
     Dosage: 20 MG, QD
     Route: 048
     Dates: start: 20140725, end: 20141001
  5. IRBETAN [Concomitant]
     Active Substance: IRBESARTAN
     Indication: HYPERTENSION
     Dosage: 100 MG, QD
     Route: 048
     Dates: end: 20141001

REACTIONS (3)
  - Renal failure [Recovering/Resolving]
  - Altered state of consciousness [Recovering/Resolving]
  - Uraemic encephalopathy [None]

NARRATIVE: CASE EVENT DATE: 20141001
